FAERS Safety Report 19274255 (Version 1)
Quarter: 2021Q2

REPORT INFORMATION
  Report Type: Spontaneous
  Country: US (occurrence: US)
  Receive Date: 20210519
  Receipt Date: 20210519
  Transmission Date: 20210717
  Serious: Yes (Life-Threatening, Disabling)
  Sender: FDA-Public Use
  Company Number: None

PATIENT
  Age: 53 Year
  Sex: Female
  Weight: 99 kg

DRUGS (4)
  1. XANAX [Suspect]
     Active Substance: ALPRAZOLAM
     Indication: AGORAPHOBIA
     Route: 048
     Dates: start: 19930101
  2. METROPOL [Concomitant]
  3. XANAX [Concomitant]
     Active Substance: ALPRAZOLAM
  4. XANAX [Suspect]
     Active Substance: ALPRAZOLAM
     Indication: ANXIETY DISORDER
     Route: 048
     Dates: start: 19930101

REACTIONS (6)
  - Intentional dose omission [None]
  - Headache [None]
  - Drug dependence [None]
  - Suicidal ideation [None]
  - Formication [None]
  - Restlessness [None]

NARRATIVE: CASE EVENT DATE: 20210518
